FAERS Safety Report 8530738-6 (Version None)
Quarter: 2012Q3

REPORT INFORMATION
  Report Type: 
  Country: None (occurrence: None)
  Receive Date: 20120723
  Receipt Date: 20120717
  Transmission Date: 20120928
  Serious: Yes (Hospitalization, Other)
  Sender: FDA-Public Use
  Company Number: PHEH2011US06560

PATIENT
  Sex: Female

DRUGS (5)
  1. COPAXONE [Concomitant]
  2. TYSABRI [Suspect]
     Dosage: 300 MG, QD
     Route: 042
     Dates: start: 20080826, end: 20101117
  3. TYSABRI [Suspect]
     Dosage: UNK UKN, UNK
     Dates: start: 20111101
  4. GILENYA [Suspect]
     Dosage: 0.5 MG, QD
     Route: 048
     Dates: start: 20110926
  5. GILENYA [Suspect]
     Dosage: 0.5 MG, QD
     Route: 048

REACTIONS (13)
  - CENTRAL NERVOUS SYSTEM LESION [None]
  - MALAISE [None]
  - DECREASED APPETITE [None]
  - MEMORY IMPAIRMENT [None]
  - APRAXIA [None]
  - VISION BLURRED [None]
  - DEMYELINATION [None]
  - ABDOMINAL PAIN UPPER [None]
  - CONFUSIONAL STATE [None]
  - FATIGUE [None]
  - BACK PAIN [None]
  - COGNITIVE DISORDER [None]
  - CONSTIPATION [None]
